FAERS Safety Report 5673486-2 (Version None)
Quarter: 2008Q2

REPORT INFORMATION
  Report Type: 
  Country: None (occurrence: None)
  Receive Date: 20080226
  Receipt Date: 20071130
  Transmission Date: 20081010
  Serious: Yes (Other)
  Sender: FDA-Public Use
  Company Number: 534470

PATIENT

DRUGS (3)
  1. ISOTRETINOIN (ISOTRETINOIN) 30 MG [Suspect]
     Indication: ACNE
     Dosage: 30 MG 2 PER DAY ORAL
     Route: 048
     Dates: end: 20071110
  2. CENTRUM [Concomitant]
  3. (MINERALS NOS/MULTIVITAMIN NOS) [Concomitant]

REACTIONS (2)
  - NO ADVERSE EVENT [None]
  - PREGNANCY [None]
